FAERS Safety Report 10003561 (Version 1)
Quarter: 2014Q1

REPORT INFORMATION
  Report Type: Spontaneous
  Country: US (occurrence: US)
  Receive Date: 20140312
  Receipt Date: 20140312
  Transmission Date: 20141002
  Serious: No
  Sender: FDA-Public Use
  Company Number: US-009507513-2011SP054183

PATIENT
  Sex: Female

DRUGS (1)
  1. CLARITIN CHEWABLE TABLETS [Suspect]
     Dosage: 5 MG, BID
     Route: 048

REACTIONS (1)
  - Overdose [Unknown]
